FAERS Safety Report 4712574-1 (Version None)
Quarter: 2005Q3

REPORT INFORMATION
  Report Type: 
  Country: None (occurrence: None)
  Receive Date: 20050712
  Receipt Date: 20030117
  Transmission Date: 20060218
  Serious: Yes (Death)
  Sender: FDA-Public Use
  Company Number: US-MERCK-0301USA01721

PATIENT
  Sex: Male

DRUGS (2)
  1. VIOXX [Suspect]
     Route: 048
     Dates: start: 19991101
  2. CELEBREX [Suspect]
     Route: 065

REACTIONS (10)
  - ABDOMINAL DISCOMFORT [None]
  - ADVERSE EVENT [None]
  - ARRHYTHMIA [None]
  - BLOOD PRESSURE INCREASED [None]
  - DEPRESSION [None]
  - LARGE INTESTINAL ULCER HAEMORRHAGE [None]
  - MYOCARDIAL INFARCTION [None]
  - OEDEMA [None]
  - OESOPHAGEAL ULCER HAEMORRHAGE [None]
  - SLEEP APNOEA SYNDROME [None]
